FAERS Safety Report 12631133 (Version 2)
Quarter: 2016Q3

REPORT INFORMATION
  Report Type: Spontaneous
  Country: US (occurrence: US)
  Receive Date: 20160808
  Receipt Date: 20160808
  Transmission Date: 20161109
  Serious: No
  Sender: FDA-Public Use
  Company Number: US-BEH-2015052424

PATIENT
  Sex: Female
  Weight: 89 kg

DRUGS (14)
  1. SYMBICORT [Concomitant]
     Active Substance: BUDESONIDE\FORMOTEROL FUMARATE DIHYDRATE
     Dosage: 1 DOSE AS DIRECTED
     Route: 048
  2. HIZENTRA [Suspect]
     Active Substance: HUMAN IMMUNOGLOBULIN G
     Indication: IMMUNODEFICIENCY COMMON VARIABLE
     Dosage: 10 GM 50 ML VIAL; 18 GM EVERY 2 WEEKS
     Route: 058
  3. ASPIRIN. [Concomitant]
     Active Substance: ASPIRIN
     Route: 048
  4. PRAVASTATIN. [Concomitant]
     Active Substance: PRAVASTATIN
     Dosage: AS DIRECTED
     Route: 048
  5. HIZENTRA [Suspect]
     Active Substance: HUMAN IMMUNOGLOBULIN G
     Dosage: 4 GM 20 ML VIAL; 18 GM EVERY 2 WEEKS
     Route: 058
  6. GABAPENTIN. [Concomitant]
     Active Substance: GABAPENTIN
     Route: 048
  7. EPIPEN [Concomitant]
     Active Substance: EPINEPHRINE
     Indication: ANAPHYLACTIC REACTION
     Dosage: 0.3 MG
     Route: 030
  8. PROPANOLOL [Concomitant]
     Active Substance: PROPRANOLOL HYDROCHLORIDE
     Route: 048
  9. DIPHENHYDRAMINE. [Concomitant]
     Active Substance: DIPHENHYDRAMINE
     Dosage: 25 MG AS DIRECTED
     Route: 048
  10. SERTRALINE [Concomitant]
     Active Substance: SERTRALINE HYDROCHLORIDE
     Dosage: AS DIRECTED
     Route: 048
  11. XOPENEX [Concomitant]
     Active Substance: LEVALBUTEROL HYDROCHLORIDE
     Dosage: 1 DOSE
     Route: 055
  12. SINGULAIR [Concomitant]
     Active Substance: MONTELUKAST SODIUM
     Dosage: BEDTIME
     Route: 048
  13. ACETAMINOPHEN. [Concomitant]
     Active Substance: ACETAMINOPHEN
     Dosage: 325 MG AS DIRECTED
     Route: 048
  14. ASTEPRO [Concomitant]
     Active Substance: AZELASTINE HYDROCHLORIDE
     Dosage: 1 DOSE

REACTIONS (2)
  - Administration site pruritus [Unknown]
  - Administration site swelling [Unknown]
